FAERS Safety Report 25684669 (Version 1)
Quarter: 2025Q3

REPORT INFORMATION
  Report Type: Spontaneous
  Country: US (occurrence: US)
  Receive Date: 20250815
  Receipt Date: 20250815
  Transmission Date: 20251021
  Serious: No
  Sender: DR REDDYS
  Company Number: None

PATIENT
  Age: 17 Year
  Sex: Female

DRUGS (16)
  1. LORAZEPAM [Suspect]
     Active Substance: LORAZEPAM
     Indication: Catatonia
  2. LORAZEPAM [Suspect]
     Active Substance: LORAZEPAM
  3. LORAZEPAM [Suspect]
     Active Substance: LORAZEPAM
  4. LORAZEPAM [Suspect]
     Active Substance: LORAZEPAM
  5. LORAZEPAM [Suspect]
     Active Substance: LORAZEPAM
  6. LORAZEPAM [Suspect]
     Active Substance: LORAZEPAM
  7. LORAZEPAM [Suspect]
     Active Substance: LORAZEPAM
     Dosage: TOTAL OF 18 MG/D
  8. LORAZEPAM [Suspect]
     Active Substance: LORAZEPAM
  9. LORAZEPAM [Suspect]
     Active Substance: LORAZEPAM
  10. LORAZEPAM [Suspect]
     Active Substance: LORAZEPAM
     Route: 048
  11. LORAZEPAM [Suspect]
     Active Substance: LORAZEPAM
  12. ZOLPIDEM [Concomitant]
     Active Substance: ZOLPIDEM TARTRATE
     Indication: Insomnia
     Dosage: NIGHTLY
  13. ZOLPIDEM [Concomitant]
     Active Substance: ZOLPIDEM TARTRATE
     Indication: Catatonia
  14. VENLAFAXINE [Concomitant]
     Active Substance: VENLAFAXINE HYDROCHLORIDE
     Indication: Product used for unknown indication
  15. HYDROXYZINE [Concomitant]
     Active Substance: HYDROXYZINE HYDROCHLORIDE
     Indication: Product used for unknown indication
  16. ARIPIPRAZOLE [Concomitant]
     Active Substance: ARIPIPRAZOLE
     Indication: Paranoia

REACTIONS (1)
  - Disinhibition [Unknown]
